FAERS Safety Report 16733166 (Version 3)
Quarter: 2019Q4

REPORT INFORMATION
  Report Type: Spontaneous
  Country: CN (occurrence: CN)
  Receive Date: 20190823
  Receipt Date: 20191130
  Transmission Date: 20200122
  Serious: Yes (Other)
  Sender: FDA-Public Use
  Company Number: CN-UCBSA-2019035841

PATIENT
  Age: 22 Year
  Sex: Female

DRUGS (4)
  1. LEVETIRACETAM. [Suspect]
     Active Substance: LEVETIRACETAM
     Indication: OFF LABEL USE
  2. SODIUM VALPROATE [Concomitant]
     Active Substance: VALPROATE SODIUM
     Indication: MYOCLONUS
     Dosage: 500 MILLIGRAM, 2X/DAY (BID)
     Route: 048
  3. SODIUM VALPROATE [Concomitant]
     Active Substance: VALPROATE SODIUM
     Dosage: WAS REDUCED GRADUALLY ONE WEEK LATER
  4. LEVETIRACETAM. [Suspect]
     Active Substance: LEVETIRACETAM
     Indication: MYOCLONUS
     Dosage: 250 MILLIGRAM, 2X/DAY (BID)

REACTIONS (6)
  - Asterixis [Recovered/Resolved]
  - Tremor [Recovered/Resolved]
  - Encephalopathy [Unknown]
  - Off label use [Unknown]
  - Ataxia [Recovered/Resolved]
  - Ammonia increased [Recovered/Resolved]
